FAERS Safety Report 21817280 (Version 1)
Quarter: 2023Q1

REPORT INFORMATION
  Report Type: Report from Study
  Country: ES (occurrence: ES)
  Receive Date: 20230104
  Receipt Date: 20230104
  Transmission Date: 20230418
  Serious: Yes (Hospitalization)
  Sender: FDA-Public Use
  Company Number: None

PATIENT
  Age: 51 Year
  Sex: Male
  Weight: 83 kg

DRUGS (1)
  1. REMICADE [Suspect]
     Active Substance: INFLIXIMAB
     Indication: Psoriasis
     Dosage: 400 MG
     Route: 042
     Dates: start: 20070131, end: 20190417

REACTIONS (1)
  - Renal hamartoma [Recovering/Resolving]

NARRATIVE: CASE EVENT DATE: 20190417
